FAERS Safety Report 10187058 (Version 1)
Quarter: 2014Q2

REPORT INFORMATION
  Report Type: Spontaneous
  Country: US (occurrence: US)
  Receive Date: 20140522
  Receipt Date: 20140522
  Transmission Date: 20141212
  Serious: No
  Sender: FDA-Public Use
  Company Number: US-SHIRE-US201402338

PATIENT
  Age: 64 Year
  Sex: Female
  Weight: 79.37 kg

DRUGS (4)
  1. LIALDA [Suspect]
     Indication: COLITIS ULCERATIVE
     Dosage: 2.4 G, 1X/DAY:QD (TWO 1.2 GM TABLETS)
     Route: 048
     Dates: start: 201208
  2. SYNTHROID [Concomitant]
     Indication: THYROID DISORDER
     Dosage: 0.1 MG, 1X/DAY:QD
     Route: 048
  3. PRILOSEC                           /00661201/ [Concomitant]
     Indication: GASTROOESOPHAGEAL REFLUX DISEASE
     Dosage: 40 MG, 1X/DAY:QD
     Route: 048
  4. ASPIRIN [Concomitant]
     Indication: PROPHYLAXIS
     Dosage: 81 MG, 1X/DAY:QD
     Route: 048

REACTIONS (2)
  - Colitis ulcerative [Recovering/Resolving]
  - Product quality issue [Recovered/Resolved]
